FAERS Safety Report 12879206 (Version 3)
Quarter: 2017Q1

REPORT INFORMATION
  Report Type: Spontaneous
  Country: ES (occurrence: ES)
  Receive Date: 20161025
  Receipt Date: 20170310
  Transmission Date: 20170428
  Serious: Yes (Hospitalization, Other)
  Sender: FDA-Public Use
  Company Number: ES-AMGEN-ESPSP2016147092

PATIENT
  Age: 57 Year
  Sex: Male

DRUGS (4)
  1. INACID [Concomitant]
     Active Substance: INDOMETHACIN
     Indication: PAIN
     Dosage: 1 DF, AS NEEDED (DAILY)
  2. ENBREL [Suspect]
     Active Substance: ETANERCEPT
     Indication: ANKYLOSING SPONDYLITIS
     Dosage: 50 MG, WEEKLY (ON MONDAYS)
     Route: 058
     Dates: start: 20160801, end: 20170206
  3. SEGURIL [Concomitant]
     Active Substance: FUROSEMIDE
     Indication: FLUID RETENTION
     Dosage: 1 DF (TABLET), 1X/DAY (EVERY 24 HOURS)
  4. ADIRO [Concomitant]
     Active Substance: ASPIRIN
     Indication: CARDIAC DISORDER
     Dosage: 1 DF (TABLET), 1X/DAY (EVERY 24 HOURS)

REACTIONS (4)
  - Cardiac disorder [Unknown]
  - Gastrooesophageal reflux disease [Not Recovered/Not Resolved]
  - Injection site haemorrhage [Recovered/Resolved]
  - Constipation [Not Recovered/Not Resolved]

NARRATIVE: CASE EVENT DATE: 2016
